FAERS Safety Report 24062383 (Version 1)
Quarter: 2024Q3

REPORT INFORMATION
  Report Type: Report from Study
  Country: BR (occurrence: BR)
  Receive Date: 20240708
  Receipt Date: 20240708
  Transmission Date: 20241017
  Serious: Yes (Death, Life-Threatening, Hospitalization, Other)
  Sender: ASTELLAS
  Company Number: BR-ASTELLAS-2010001429

PATIENT
  Age: 62 Year
  Sex: Male
  Weight: 64 kg

DRUGS (8)
  1. ERLOTINIB [Suspect]
     Active Substance: ERLOTINIB
     Indication: Hepatocellular carcinoma
     Route: 048
     Dates: start: 20100401, end: 20100411
  2. ERLOTINIB [Suspect]
     Active Substance: ERLOTINIB
     Indication: Abdominal distension
  3. ERLOTINIB [Suspect]
     Active Substance: ERLOTINIB
     Indication: Hypertension
  4. SORAFENIB [Suspect]
     Active Substance: SORAFENIB
     Indication: Hepatocellular carcinoma
     Route: 048
     Dates: start: 20100401, end: 20100411
  5. SORAFENIB [Suspect]
     Active Substance: SORAFENIB
     Indication: Abdominal distension
  6. SORAFENIB [Suspect]
     Active Substance: SORAFENIB
     Indication: Hypertension
  7. PROPRANOLOL [Concomitant]
     Active Substance: PROPRANOLOL HYDROCHLORIDE
     Indication: Product used for unknown indication
     Dosage: UNK UNK, UNKNOWN FREQ.
     Route: 065
     Dates: start: 200610, end: 20100411
  8. DOMPERIDONE [Concomitant]
     Active Substance: DOMPERIDONE
     Indication: Product used for unknown indication
     Dosage: UNK UNK, UNKNOWN FREQ.
     Route: 065
     Dates: start: 20081218, end: 20100411

REACTIONS (4)
  - Diarrhoea [Fatal]
  - Hepatic function abnormal [Fatal]
  - Renal failure [Fatal]
  - Off label use [Unknown]

NARRATIVE: CASE EVENT DATE: 20100401
